FAERS Safety Report 19160065 (Version 1)
Quarter: 2021Q2

REPORT INFORMATION
  Report Type: Spontaneous
  Country: US (occurrence: US)
  Receive Date: 20210420
  Receipt Date: 20210420
  Transmission Date: 20210717
  Serious: Yes (Life-Threatening, Other)
  Sender: FDA-Public Use
  Company Number: US-BAYER-2021-121891

PATIENT
  Age: 3 Year
  Sex: Female

DRUGS (2)
  1. MMR VACCIN [Concomitant]
     Active Substance: MEASLES-MUMPS-RUBELLA VIRUS VACCINE
  2. BAYER LOW DOSE [Suspect]
     Active Substance: ASPIRIN
     Route: 065

REACTIONS (2)
  - Anaphylactic reaction [Unknown]
  - Product use issue [Unknown]
